FAERS Safety Report 6954286-X (Version None)
Quarter: 2010Q3

REPORT INFORMATION
  Report Type: 
  Country: None (occurrence: None)
  Receive Date: 20100829
  Receipt Date: 20100712
  Transmission Date: 20110219
  Serious: No
  Sender: FDA-Public Use
  Company Number: US-ABBOTT-10P-163-0657637-00

PATIENT
  Sex: Male
  Weight: 97.61 kg

DRUGS (7)
  1. NIASPAN [Suspect]
     Indication: HIGH DENSITY LIPOPROTEIN DECREASED
     Dosage: 500 MG EVERY NIGHT
     Dates: start: 20100702
  2. LANTUS [Concomitant]
     Indication: DIABETES MELLITUS
     Dates: start: 20100711, end: 20100711
  3. LANTUS [Concomitant]
  4. METFORMIN [Concomitant]
     Indication: DIABETES MELLITUS
  5. ACTOS [Concomitant]
     Indication: PRODUCT USED FOR UNKNOWN INDICATION
  6. SIMVASTATIN [Concomitant]
     Indication: BLOOD CHOLESTEROL INCREASED
  7. RAMIPRIL [Concomitant]
     Indication: HYPERTENSION

REACTIONS (1)
  - BLOOD GLUCOSE INCREASED [None]
